FAERS Safety Report 7026437-2 (Version None)
Quarter: 2010Q4

REPORT INFORMATION
  Report Type: 
  Country: None (occurrence: None)
  Receive Date: 20101004
  Receipt Date: 20100930
  Transmission Date: 20110411
  Serious: Yes (Death)
  Sender: FDA-Public Use
  Company Number: PHHY2010NL64983

PATIENT
  Age: 71 Year
  Sex: Female

DRUGS (1)
  1. TOBI [Suspect]

REACTIONS (1)
  - DEATH [None]
